FAERS Safety Report 9812162 (Version 1)
Quarter: 2014Q1

REPORT INFORMATION
  Report Type: Spontaneous
  Country: US (occurrence: US)
  Receive Date: 20140112
  Receipt Date: 20140112
  Transmission Date: 20141002
  Serious: No
  Sender: FDA-Public Use
  Company Number: US-BAYER-2014-005353

PATIENT
  Age: 62 Year
  Sex: Female
  Weight: 181 kg

DRUGS (5)
  1. ALEVE CAPLET [Suspect]
     Indication: MIGRAINE
     Dosage: UNK
     Route: 048
  2. SYNTHROID [Concomitant]
     Dosage: UNK
  3. DILTIAZEM [Concomitant]
     Dosage: UNK
  4. SIMPLEX [ACICLOVIR] [Concomitant]
     Dosage: UNK
  5. VICODIN [Concomitant]
     Dosage: UNK

REACTIONS (2)
  - Extra dose administered [None]
  - Off label use [None]
